FAERS Safety Report 21144788 (Version 1)
Quarter: 2022Q3

REPORT INFORMATION
  Report Type: Spontaneous
  Country: US (occurrence: None)
  Receive Date: 20220728
  Receipt Date: 20220728
  Transmission Date: 20221027
  Serious: No
  Sender: FDA-Public Use
  Company Number: US-ROCHE-3028671

PATIENT
  Age: 64 Year
  Sex: Female

DRUGS (18)
  1. PERJETA [Suspect]
     Active Substance: PERTUZUMAB
     Indication: Product used for unknown indication
     Route: 065
     Dates: start: 20211203
  2. ERGOCALCIFEROL [Concomitant]
     Active Substance: ERGOCALCIFEROL
     Dates: start: 2012
  3. POTASSIUM [Concomitant]
     Active Substance: POTASSIUM
     Dates: start: 2012
  4. ADVIL [Concomitant]
     Active Substance: IBUPROFEN
     Dates: start: 2012
  5. MAGNESIUM [Concomitant]
     Active Substance: MAGNESIUM
     Dates: start: 2012, end: 202112
  6. ASPIRIN [Concomitant]
     Active Substance: ASPIRIN
  7. GABAPENTIN [Concomitant]
     Active Substance: GABAPENTIN
     Dates: start: 2012
  8. METFORMIN [Concomitant]
     Active Substance: METFORMIN HYDROCHLORIDE
     Dates: start: 20190301
  9. VICTOZA [Concomitant]
     Active Substance: LIRAGLUTIDE
     Dates: start: 20200521
  10. LEVOTHYROXINE [Concomitant]
     Active Substance: LEVOTHYROXINE
     Dates: start: 20210303
  11. COENZYME Q10 [Concomitant]
     Active Substance: DIETARY SUPPLEMENT\UBIDECARENONE
     Dates: start: 20210303
  12. OLMESARTAN [Concomitant]
     Active Substance: OLMESARTAN
     Dates: start: 202105
  13. ZYRTEC [Concomitant]
     Active Substance: CETIRIZINE HYDROCHLORIDE
     Dates: start: 202103
  14. ATORVASTATIN [Concomitant]
     Active Substance: ATORVASTATIN
     Dates: start: 202109
  15. DOCETAXEL [Concomitant]
     Active Substance: DOCETAXEL
     Dates: start: 20211203, end: 20211203
  16. TRASTUZUMAB [Concomitant]
     Active Substance: TRASTUZUMAB
     Dates: start: 20211203, end: 20211203
  17. CARBOPLATIN [Concomitant]
     Active Substance: CARBOPLATIN
     Dates: start: 20211203, end: 20211203
  18. OBETICHOLIC ACID [Concomitant]
     Active Substance: OBETICHOLIC ACID

REACTIONS (1)
  - Diarrhoea [Recovered/Resolved]

NARRATIVE: CASE EVENT DATE: 20211203
